FAERS Safety Report 13171132 (Version 2)
Quarter: 2018Q1

REPORT INFORMATION
  Report Type: Report from Study
  Country: US (occurrence: US)
  Receive Date: 20170201
  Receipt Date: 20180112
  Transmission Date: 20180508
  Serious: Yes (Hospitalization, Other)
  Sender: FDA-Public Use
  Company Number: US-ROCHE-1886648

PATIENT
  Age: 81 Year
  Sex: Female
  Weight: 29.51 kg

DRUGS (7)
  1. TYLENOL [Concomitant]
     Active Substance: ACETAMINOPHEN
     Indication: PAIN
     Dosage: ONGOING: YES
     Route: 048
  2. OXYCODONE [Concomitant]
     Active Substance: OXYCODONE
     Indication: PAIN
     Dosage: BY SEVERITY: ONGOING: YES
     Route: 048
  3. LUCENTIS [Suspect]
     Active Substance: RANIBIZUMAB
     Indication: NEOVASCULAR AGE-RELATED MACULAR DEGENERATION
     Dosage: UNKNOWN
     Route: 065
  4. PRESERVISION [Concomitant]
     Active Substance: MINERALS\VITAMINS
  5. LUCENTIS [Suspect]
     Active Substance: RANIBIZUMAB
     Dosage: ONGOING: NO
     Route: 065
  6. MORPHINE [Concomitant]
     Active Substance: MORPHINE
     Indication: PAIN
     Dosage: AS NEEDED: .5ML
     Route: 048
  7. REFLEX [Concomitant]
     Active Substance: MIRTAZAPINE
     Indication: SLEEP DISORDER
     Dosage: FREQUENCY 1: INTERVAL 1
     Route: 048

REACTIONS (14)
  - Blindness unilateral [Not Recovered/Not Resolved]
  - Seizure [Not Recovered/Not Resolved]
  - Arthralgia [Not Recovered/Not Resolved]
  - Malnutrition [Not Recovered/Not Resolved]
  - Seizure [Recovered/Resolved]
  - Fractured sacrum [Not Recovered/Not Resolved]
  - Ill-defined disorder [Recovered/Resolved]
  - Pelvic fracture [Not Recovered/Not Resolved]
  - Loss of consciousness [Recovered/Resolved]
  - Mental status changes [Recovered/Resolved]
  - Contusion [Not Recovered/Not Resolved]
  - Fall [Unknown]
  - Transient ischaemic attack [Recovered/Resolved]
  - Asthenia [Not Recovered/Not Resolved]

NARRATIVE: CASE EVENT DATE: 201610
